FAERS Safety Report 9177780 (Version 1)
Quarter: 2013Q1

REPORT INFORMATION
  Report Type: Spontaneous
  Country: US (occurrence: None)
  Receive Date: 20130319
  Receipt Date: 20130319
  Transmission Date: 20140127
  Serious: Yes (Other)
  Sender: FDA-Public Use
  Company Number: USA/USA/13/0028561

PATIENT
  Sex: Female

DRUGS (2)
  1. FLUOXETINE (FLUOXETINE) [Suspect]
     Indication: DEPRESSION
     Dates: start: 2008
  2. PROZAC (FLUOXETINE HYDROCHLORIDE) [Suspect]
     Indication: DEPRESSION
     Dates: end: 2008

REACTIONS (5)
  - Maternal exposure during pregnancy [None]
  - Pain [None]
  - Anxiety [None]
  - Anhedonia [None]
  - Multiple injuries [None]
